FAERS Safety Report 14923237 (Version 1)
Quarter: 2018Q2

REPORT INFORMATION
  Report Type: Spontaneous
  Country: US (occurrence: US)
  Receive Date: 20180503
  Receipt Date: 20180503
  Transmission Date: 20180711
  Serious: No
  Sender: FDA-Public Use
  Company Number: None

PATIENT
  Age: 45 Year
  Sex: Female
  Weight: 97.52 kg

DRUGS (4)
  1. BENADRYL [Concomitant]
     Active Substance: DIPHENHYDRAMINE HYDROCHLORIDE
  2. TYLENOL [Concomitant]
     Active Substance: ACETAMINOPHEN
  3. GAMUNEX-C [Suspect]
     Active Substance: HUMAN IMMUNOGLOBULIN G
     Indication: CHRONIC INFLAMMATORY DEMYELINATING POLYRADICULONEUROPATHY
     Route: 042
     Dates: start: 20130409, end: 20130413
  4. EPIPEN [Concomitant]
     Active Substance: EPINEPHRINE

REACTIONS (5)
  - Skin exfoliation [None]
  - Product quality issue [None]
  - Infusion related reaction [None]
  - Rash [None]
  - Refusal of treatment by patient [None]

NARRATIVE: CASE EVENT DATE: 20180409
